FAERS Safety Report 10046998 (Version 1)
Quarter: 2014Q1

REPORT INFORMATION
  Report Type: Spontaneous
  Country: AU (occurrence: AU)
  Receive Date: 20140331
  Receipt Date: 20140331
  Transmission Date: 20141002
  Serious: Yes (Death, Other)
  Sender: FDA-Public Use
  Company Number: PHHY2014AU037947

PATIENT
  Age: 56 Year
  Sex: Female

DRUGS (5)
  1. CICLOSPORIN [Suspect]
     Indication: IMMUNOSUPPRESSION
     Dosage: UNK
  2. TACROLIMUS [Suspect]
     Indication: IMMUNOSUPPRESSION
     Dosage: UNK
  3. MYCOPHENOLIC ACID [Suspect]
     Indication: IMMUNOSUPPRESSION
     Dosage: UNK
  4. PREDNISOLONE [Suspect]
     Indication: IMMUNOSUPPRESSION
     Dosage: UNK
  5. ANTITHYMOCYTE IMMUNOGLOBULIN [Suspect]

REACTIONS (9)
  - Bronchopulmonary aspergillosis [Fatal]
  - Transplant failure [Unknown]
  - Sepsis [Unknown]
  - Bone marrow failure [Unknown]
  - Aplastic anaemia [Unknown]
  - Anaemia [Unknown]
  - Pancytopenia [Unknown]
  - Neutropenia [Unknown]
  - Drug ineffective [Unknown]
